FAERS Safety Report 15772150 (Version 2)
Quarter: 2019Q1

REPORT INFORMATION
  Report Type: Spontaneous
  Country: US (occurrence: US)
  Receive Date: 20181228
  Receipt Date: 20190315
  Transmission Date: 20190417
  Serious: Yes (Other)
  Sender: FDA-Public Use
  Company Number: US-SA-2018SA394570

PATIENT
  Age: 68 Year
  Sex: Female
  Weight: 61 kg

DRUGS (4)
  1. NEOSAR [Concomitant]
     Active Substance: CYCLOPHOSPHAMIDE
     Dosage: 122 UNK
     Route: 042
     Dates: start: 20090707, end: 20090707
  2. TAXOTERE [Suspect]
     Active Substance: DOCETAXEL
     Indication: BREAST CANCER
     Dosage: 122 MG, QD
     Route: 042
     Dates: start: 20090324, end: 20090324
  3. TAXOTERE [Suspect]
     Active Substance: DOCETAXEL
     Dosage: UNK, UNK
     Route: 042
     Dates: start: 20090707, end: 20090707
  4. NEOSAR [Concomitant]
     Active Substance: CYCLOPHOSPHAMIDE
     Dosage: 122 MG, Q3W
     Route: 042
     Dates: start: 20090324, end: 20090324

REACTIONS (2)
  - Alopecia [Recovering/Resolving]
  - Psychological trauma [Unknown]

NARRATIVE: CASE EVENT DATE: 200904
